FAERS Safety Report 25282803 (Version 1)
Quarter: 2025Q2

REPORT INFORMATION
  Report Type: Spontaneous
  Country: US (occurrence: None)
  Receive Date: 20250508
  Receipt Date: 20250508
  Transmission Date: 20250716
  Serious: No
  Sender: FDA-CTU
  Company Number: None

PATIENT
  Sex: Female

DRUGS (1)
  1. RINVOQ [Suspect]
     Active Substance: UPADACITINIB
     Indication: Systemic scleroderma
     Dosage: 15 MG DAILY ORAL
     Route: 048
     Dates: start: 20250215

REACTIONS (2)
  - Nausea [None]
  - Vomiting [None]
